FAERS Safety Report 11185929 (Version 1)
Quarter: 2015Q2

REPORT INFORMATION
  Report Type: Spontaneous
  Country: DE (occurrence: DE)
  Receive Date: 20150612
  Receipt Date: 20150612
  Transmission Date: 20150821
  Serious: Yes (Life-Threatening, Hospitalization, Other)
  Sender: FDA-Public Use
  Company Number: DE-JNJFOC-20150412621

PATIENT
  Age: 85 Year
  Sex: Male
  Weight: 60 kg

DRUGS (4)
  1. IMBRUVICA [Suspect]
     Active Substance: IBRUTINIB
     Indication: MANTLE CELL LYMPHOMA
     Route: 048
     Dates: start: 201411, end: 20150301
  2. IMBRUVICA [Suspect]
     Active Substance: IBRUTINIB
     Indication: MANTLE CELL LYMPHOMA
     Route: 048
     Dates: start: 20150330
  3. BISOPROLOL [Concomitant]
     Active Substance: BISOPROLOL
     Dosage: 1-0-0
  4. SIMVASTATIN. [Concomitant]
     Active Substance: SIMVASTATIN
     Dosage: 0-0-1

REACTIONS (11)
  - General physical health deterioration [Recovering/Resolving]
  - Oral candidiasis [Unknown]
  - Ligament sprain [Recovering/Resolving]
  - Atrial flutter [Recovered/Resolved]
  - Oral herpes [Recovered/Resolved]
  - Liver disorder [Unknown]
  - Tooth abscess [Recovered/Resolved]
  - Neutropenia [Recovered/Resolved]
  - Vertigo [Unknown]
  - Leukopenia [Unknown]
  - Fall [Unknown]

NARRATIVE: CASE EVENT DATE: 201503
